FAERS Safety Report 8425948-2 (Version None)
Quarter: 2012Q2

REPORT INFORMATION
  Report Type: 
  Country: None (occurrence: None)
  Receive Date: 20120601
  Receipt Date: 20120528
  Transmission Date: 20120825
  Serious: Yes (Death, Life-Threatening, Hospitalization)
  Sender: FDA-Public Use
  Company Number: CN-1187214

PATIENT
  Age: 66 Year
  Sex: Male

DRUGS (1)
  1. FLUORESCITE [Suspect]
     Indication: ANGIOGRAM RETINA
     Dosage: (5 ML INTRAVENOUS BOLUS)
     Route: 040
     Dates: start: 20110713, end: 20110713

REACTIONS (8)
  - COMA [None]
  - ABDOMINAL PAIN UPPER [None]
  - ANAPHYLACTIC SHOCK [None]
  - RESPIRATORY ARREST [None]
  - CARDIAC ARREST [None]
  - NAUSEA [None]
  - STUPOR [None]
  - FEAR [None]
